FAERS Safety Report 8456609-1 (Version None)
Quarter: 2012Q2

REPORT INFORMATION
  Report Type: 
  Country: None (occurrence: None)
  Receive Date: 20120621
  Receipt Date: 20120614
  Transmission Date: 20120825
  Serious: Yes (Other)
  Sender: FDA-Public Use
  Company Number: US-ASTRAZENECA-2012SE40503

PATIENT
  Age: 67 Year
  Sex: Female

DRUGS (1)
  1. NEXIUM [Suspect]
     Route: 048

REACTIONS (6)
  - DRUG DOSE OMISSION [None]
  - DIABETES MELLITUS [None]
  - ABDOMINAL PAIN UPPER [None]
  - TREATMENT NONCOMPLIANCE [None]
  - LUNG INFILTRATION [None]
  - BRAIN NEOPLASM MALIGNANT [None]
